FAERS Safety Report 12954731 (Version 1)
Quarter: 2016Q4

REPORT INFORMATION
  Report Type: Spontaneous
  Country: US (occurrence: None)
  Receive Date: 20161117
  Receipt Date: 20161117
  Transmission Date: 20170207
  Serious: Yes (Other)
  Sender: FDA-Public Use
  Company Number: 2016110029

PATIENT
  Age: 66 Year
  Sex: Male
  Weight: 99.79 kg

DRUGS (1)
  1. CONTAC COLD AND FLU - DAY AND NIGHT [Suspect]
     Active Substance: ACETAMINOPHEN\CHLORPHENIRAMINE MALEATE\PHENYLEPHRINE HYDROCHLORIDE
     Indication: NASOPHARYNGITIS
     Dosage: 4 DOSAGE FORMS (2 DOSAGE FORMS, 2 IN 1 D) CAPLETS
     Dates: start: 20161110, end: 20161113

REACTIONS (1)
  - Blood pressure increased [None]

NARRATIVE: CASE EVENT DATE: 20161114
